FAERS Safety Report 4545549-6 (Version None)
Quarter: 2005Q1

REPORT INFORMATION
  Report Type: 
  Country: None (occurrence: None)
  Receive Date: 20050105
  Receipt Date: 20030516
  Transmission Date: 20050727
  Serious: Yes (Disabling)
  Sender: FDA-Public Use
  Company Number: FR-MERCK-0412USA02721

PATIENT
  Age: 47 Year
  Sex: Female

DRUGS (4)
  1. MODURETIC 5-50 [Suspect]
     Indication: MEDICAL DIET
     Route: 048
     Dates: end: 19970109
  2. TARDYFERON [Suspect]
     Route: 048
  3. LEXOMIL [Concomitant]
     Indication: ANXIETY
     Route: 065
  4. DEROXAT [Concomitant]
     Indication: ANXIETY
     Route: 065

REACTIONS (4)
  - JOINT SPRAIN [None]
  - PHOTOSENSITIVITY REACTION [None]
  - RETINAL DISORDER [None]
  - VISUAL DISTURBANCE [None]
